APPROVED DRUG PRODUCT: NYSTATIN
Active Ingredient: NYSTATIN
Strength: 100,000 UNITS
Dosage Form/Route: TABLET;VAGINAL
Application: A062502 | Product #001
Applicant: TEVA PHARMACEUTICALS USA INC
Approved: Dec 23, 1983 | RLD: No | RS: No | Type: DISCN